FAERS Safety Report 8182345 (Version 3)
Quarter: 2013Q1

REPORT INFORMATION
  Report Type: Spontaneous
  Country: US (occurrence: US)
  Receive Date: 20111014
  Receipt Date: 20130312
  Transmission Date: 20140127
  Serious: Yes (Other)
  Sender: FDA-Public Use
  Company Number: US-ROCHE-1002715

PATIENT
  Age: 26 Year
  Sex: Female
  Weight: 130 kg

DRUGS (5)
  1. ACCUTANE [Suspect]
     Indication: ACNE
     Route: 048
     Dates: start: 200510
  2. ACCUTANE [Suspect]
     Route: 048
     Dates: start: 20090804
  3. ACCUTANE [Suspect]
     Route: 048
     Dates: start: 20090804, end: 20090915
  4. NECON [Concomitant]
  5. PROAIR (UNITED STATES) [Concomitant]

REACTIONS (8)
  - Crohn^s disease [Unknown]
  - Inflammatory bowel disease [Unknown]
  - Injury [Unknown]
  - Anxiety [Unknown]
  - Depression [Unknown]
  - Myalgia [Unknown]
  - Lip dry [Unknown]
  - Chapped lips [Unknown]
